FAERS Safety Report 5115115-2 (Version None)
Quarter: 2006Q3

REPORT INFORMATION
  Report Type: 
  Country: None (occurrence: None)
  Receive Date: 20060925
  Receipt Date: 20060925
  Transmission Date: 20061208
  Serious: Yes (Other)
  Sender: FDA-Public Use
  Company Number: None

PATIENT
  Age: 17 Year
  Sex: Female
  Weight: 55.9739 kg

DRUGS (1)
  1. AMOXICILLIN [Suspect]
     Indication: SINUSITIS
     Dosage: 875 MG   1 TIME    PO  (1 DOSE)
     Route: 048
     Dates: start: 20060902, end: 20060902

REACTIONS (1)
  - DERMATITIS ALLERGIC [None]
